FAERS Safety Report 6519590-8 (Version None)
Quarter: 2009Q4

REPORT INFORMATION
  Report Type: 
  Country: None (occurrence: None)
  Receive Date: 20091228
  Receipt Date: 20091110
  Transmission Date: 20100525
  Serious: Yes (Death, Hospitalization, Other)
  Sender: FDA-Public Use
  Company Number: US-BAXTER-2008BH010991

PATIENT
  Age: 39 Year
  Sex: Male
  Weight: 103 kg

DRUGS (20)
  1. HEPARIN SODIUM INJECTION [Suspect]
     Indication: THROMBOSIS PROPHYLAXIS
     Route: 010
     Dates: start: 20040101, end: 20070717
  2. HEPARIN SODIUM INJECTION [Suspect]
     Indication: COAGULOPATHY
     Route: 010
     Dates: start: 20040101, end: 20070717
  3. HEPARIN SODIUM INJECTION [Suspect]
     Indication: DEEP VEIN THROMBOSIS
     Route: 010
     Dates: start: 20040101, end: 20070717
  4. HEPARIN SODIUM INJECTION [Suspect]
     Route: 010
     Dates: start: 20070717, end: 20071113
  5. HEPARIN SODIUM INJECTION [Suspect]
     Route: 010
     Dates: start: 20070717, end: 20071113
  6. HEPARIN SODIUM INJECTION [Suspect]
     Route: 010
     Dates: start: 20070717, end: 20071113
  7. HEPARIN SODIUM INJECTION [Suspect]
     Route: 042
     Dates: start: 20061125, end: 20061129
  8. HEPARIN SODIUM INJECTION [Suspect]
     Route: 042
     Dates: start: 20061125, end: 20061129
  9. HEPARIN SODIUM INJECTION [Suspect]
     Route: 042
     Dates: start: 20061125, end: 20061129
  10. CYMBALTA [Concomitant]
     Indication: DRUG USE FOR UNKNOWN INDICATION
     Route: 048
  11. COUMADIN [Concomitant]
     Indication: DRUG USE FOR UNKNOWN INDICATION
     Route: 048
  12. PHENERGAN HCL [Concomitant]
     Indication: DRUG USE FOR UNKNOWN INDICATION
     Route: 048
  13. HYDROCODONE [Concomitant]
     Indication: DRUG USE FOR UNKNOWN INDICATION
     Route: 048
  14. RENAGEL [Concomitant]
     Indication: DRUG USE FOR UNKNOWN INDICATION
     Route: 048
  15. ZYRTEC [Concomitant]
     Indication: DRUG USE FOR UNKNOWN INDICATION
     Route: 048
  16. ESZOPICLONE [Concomitant]
     Indication: DRUG USE FOR UNKNOWN INDICATION
     Route: 048
  17. EPOGEN [Concomitant]
     Indication: DRUG USE FOR UNKNOWN INDICATION
     Route: 065
  18. IRON [Concomitant]
     Indication: DRUG USE FOR UNKNOWN INDICATION
     Route: 065
  19. NORVASC [Concomitant]
     Indication: HYPERTENSION
     Route: 048
  20. COLACE [Concomitant]
     Indication: DRUG USE FOR UNKNOWN INDICATION
     Route: 048

REACTIONS (10)
  - ATRIAL FIBRILLATION [None]
  - ATRIOVENTRICULAR BLOCK COMPLETE [None]
  - CARDIAC OPERATION [None]
  - CHEST PAIN [None]
  - CONDITION AGGRAVATED [None]
  - ENDOCARDITIS [None]
  - NAUSEA [None]
  - RENAL FAILURE [None]
  - STAPHYLOCOCCAL BACTERAEMIA [None]
  - VOMITING [None]
